FAERS Safety Report 11746275 (Version 2)
Quarter: 2015Q4

REPORT INFORMATION
  Report Type: Spontaneous
  Country: BR (occurrence: BR)
  Receive Date: 20151117
  Receipt Date: 20151117
  Transmission Date: 20160304
  Serious: Yes (Other)
  Sender: FDA-Public Use
  Company Number: BR-JUBILANT CADISTA PHARMACEUTICALS-2015JUB00366

PATIENT
  Age: 57 Year
  Sex: Male

DRUGS (1)
  1. PREDNISONE. [Suspect]
     Active Substance: PREDNISONE
     Indication: POLYARTHRITIS
     Dosage: 40 MG, 1X/DAY
     Route: 048

REACTIONS (2)
  - Retinitis [Recovered/Resolved]
  - Syphilis [Recovered/Resolved]
